FAERS Safety Report 11170902 (Version 1)
Quarter: 2015Q2

REPORT INFORMATION
  Report Type: Spontaneous
  Country: US (occurrence: None)
  Receive Date: 20150605
  Receipt Date: 20150605
  Transmission Date: 20150821
  Serious: Yes (Life-Threatening, Hospitalization)
  Sender: FDA-Public Use
  Company Number: None

PATIENT
  Age: 26 Year
  Sex: Female
  Weight: 79.83 kg

DRUGS (5)
  1. TRAZIDONETC [Concomitant]
  2. VITAMIN D [Concomitant]
     Active Substance: CHOLECALCIFEROL
  3. NUVARING [Suspect]
     Active Substance: ETHINYL ESTRADIOL\ETONOGESTREL
     Indication: CONTRACEPTION
     Dosage: 1 RING ONCE EVERY 4 WEEKS VAGINAL
     Route: 067
     Dates: start: 20140715, end: 20150502
  4. WARFARIN [Concomitant]
     Active Substance: WARFARIN
  5. CYMBALTA [Concomitant]
     Active Substance: DULOXETINE HYDROCHLORIDE

REACTIONS (1)
  - Cerebral venous thrombosis [None]

NARRATIVE: CASE EVENT DATE: 20150501
